FAERS Safety Report 7300947-2 (Version None)
Quarter: 2011Q1

REPORT INFORMATION
  Report Type: 
  Country: None (occurrence: None)
  Receive Date: 20110218
  Receipt Date: 20110203
  Transmission Date: 20110831
  Serious: Yes (Other)
  Sender: FDA-Public Use
  Company Number: PHNR2005AU01244

PATIENT
  Sex: Female

DRUGS (4)
  1. CLOZARIL [Suspect]
     Indication: SCHIZOPHRENIA
     Dosage: 0 - 500 MG/DAY
     Dates: start: 20040701, end: 20050810
  2. CLOZARIL [Suspect]
     Dosage: 250 MG, UNK
     Dates: start: 20050913
  3. VALPROATE SODIUM [Suspect]
  4. PAROXETINE [Concomitant]

REACTIONS (33)
  - ALANINE AMINOTRANSFERASE INCREASED [None]
  - GOUT [None]
  - ABDOMINAL HERNIA [None]
  - ULTRASOUND ABDOMEN ABNORMAL [None]
  - PROTEIN TOTAL INCREASED [None]
  - PSYCHOTIC DISORDER [None]
  - NEUTROPENIA [None]
  - HYPERCHOLESTEROLAEMIA [None]
  - NAUSEA [None]
  - MEMORY IMPAIRMENT [None]
  - HEPATIC STEATOSIS [None]
  - GAMMA-GLUTAMYLTRANSFERASE INCREASED [None]
  - NUCLEAR MAGNETIC RESONANCE IMAGING BRAIN ABNORMAL [None]
  - RED BLOOD CELL SEDIMENTATION RATE INCREASED [None]
  - WEIGHT INCREASED [None]
  - HEADACHE [None]
  - LIVER DISORDER [None]
  - BLOOD TRIGLYCERIDES INCREASED [None]
  - ASPARTATE AMINOTRANSFERASE INCREASED [None]
  - VOMITING [None]
  - BLOOD CALCIUM INCREASED [None]
  - BLOOD PHOSPHORUS INCREASED [None]
  - BLOOD ALKALINE PHOSPHATASE INCREASED [None]
  - HIATUS HERNIA [None]
  - HYPERTRIGLYCERIDAEMIA [None]
  - CEREBRAL ATROPHY [None]
  - MALAISE [None]
  - HEPATIC ENZYME INCREASED [None]
  - CHOLESTASIS [None]
  - BLOOD URIC ACID INCREASED [None]
  - AGRANULOCYTOSIS [None]
  - SEXUALLY TRANSMITTED DISEASE [None]
  - BLOOD CHOLESTEROL INCREASED [None]
